FAERS Safety Report 9906843 (Version 1)
Quarter: 2014Q1

REPORT INFORMATION
  Report Type: Spontaneous
  Country: US (occurrence: US)
  Receive Date: 20140218
  Receipt Date: 20140218
  Transmission Date: 20141002
  Serious: No
  Sender: FDA-Public Use
  Company Number: US-BAYER-2014-021888

PATIENT
  Age: 55 Year
  Sex: Female
  Weight: 90.7 kg

DRUGS (3)
  1. ALEVE GELCAPS [Suspect]
     Indication: ANALGESIC THERAPY
     Dosage: EITHER 1 OR 2 DF FOR THE FIRST DOSE AND 1 DF SECOND DOSE, BID
     Route: 048
     Dates: start: 201401
  2. ALEVE GELCAPS [Suspect]
     Indication: ANALGESIC THERAPY
     Dosage: 1-2 DF, QD
     Route: 048
     Dates: start: 201402
  3. HYDROCODONE [Concomitant]

REACTIONS (3)
  - Incorrect drug administration duration [None]
  - Drug ineffective [None]
  - Product physical issue [None]
